FAERS Safety Report 7767876-1 (Version None)
Quarter: 2011Q3

REPORT INFORMATION
  Report Type: 
  Country: None (occurrence: None)
  Receive Date: 20110922
  Receipt Date: 20110309
  Transmission Date: 20111222
  Serious: No
  Sender: FDA-Public Use
  Company Number: US-ASTRAZENECA-2011SE13122

PATIENT
  Age: 20 Year
  Sex: Female

DRUGS (2)
  1. ZOLOFT [Concomitant]
  2. SEROQUEL [Suspect]
     Route: 048
     Dates: end: 20100501

REACTIONS (2)
  - MENORRHAGIA [None]
  - POLYMENORRHOEA [None]
